FAERS Safety Report 17000113 (Version 3)
Quarter: 2020Q2

REPORT INFORMATION
  Report Type: Spontaneous
  Country: CA (occurrence: CA)
  Receive Date: 20191106
  Receipt Date: 20200625
  Transmission Date: 20200713
  Serious: Yes (Other)
  Sender: FDA-Public Use
  Company Number: CA-OSMOTICA_PHARMACEUTICAL_US_LLC-POI0573201900452

PATIENT
  Age: 38 Year
  Sex: Male

DRUGS (2)
  1. SPIRONOLACTONE. [Suspect]
     Active Substance: SPIRONOLACTONE
     Indication: TESTIS CANCER
  2. DIVIGEL [Suspect]
     Active Substance: ESTRADIOL
     Indication: TESTIS CANCER
     Dates: start: 2019

REACTIONS (8)
  - Retroperitoneal mass [Unknown]
  - Back pain [Unknown]
  - Testicular mass [Unknown]
  - Pelvic venous thrombosis [Unknown]
  - Lymphadenopathy [Unknown]
  - Weight decreased [Unknown]
  - Abdominal pain [Unknown]
  - Off label use [Unknown]

NARRATIVE: CASE EVENT DATE: 2019
